FAERS Safety Report 23876058 (Version 1)
Quarter: 2024Q2

REPORT INFORMATION
  Report Type: Spontaneous
  Country: US (occurrence: US)
  Receive Date: 20240520
  Receipt Date: 20240520
  Transmission Date: 20240716
  Serious: Yes (Other)
  Sender: FDA-Public Use
  Company Number: US-ELI_LILLY_AND_COMPANY-US202405006599

PATIENT
  Age: 68 Year
  Sex: Female

DRUGS (3)
  1. TRULICITY [Suspect]
     Active Substance: DULAGLUTIDE
     Indication: Type 2 diabetes mellitus
     Dosage: UNK UNK, UNKNOWN
     Route: 058
     Dates: start: 202310
  2. QUINIDINE [Concomitant]
     Active Substance: QUINIDINE
     Indication: Cardiac disorder
  3. FLAVOXATE [Concomitant]
     Active Substance: FLAVOXATE
     Indication: Muscle spasms

REACTIONS (4)
  - Myocardial infarction [Unknown]
  - Renal failure [Unknown]
  - Peripheral arterial occlusive disease [Unknown]
  - Blood cholesterol abnormal [Unknown]

NARRATIVE: CASE EVENT DATE: 20231201
